FAERS Safety Report 5169775-0 (Version None)
Quarter: 2006Q4

REPORT INFORMATION
  Report Type: 
  Country: None (occurrence: None)
  Receive Date: 20061212
  Receipt Date: 20061201
  Transmission Date: 20070319
  Serious: Yes (Hospitalization)
  Sender: FDA-Public Use
  Company Number: US-KINGPHARMUSA00001-K200601532

PATIENT
  Age: 42 Year
  Sex: Male

DRUGS (4)
  1. ALTACE [Suspect]
     Dosage: 10 MG, QD
     Route: 048
     Dates: start: 20040101, end: 20061102
  2. ACTRAPID     /00646001/ [Concomitant]
     Route: 058
  3. LEVEMIR [Concomitant]
     Route: 058
  4. SPASMONAL   /00097002/ [Concomitant]
     Indication: ABDOMINAL PAIN
     Dosage: UNK, UNK
     Route: 048
     Dates: end: 20061030

REACTIONS (6)
  - ABDOMINAL PAIN [None]
  - PANCREATIC DISORDER [None]
  - PANCREATITIS CHRONIC [None]
  - PANCREATOLITHIASIS [None]
  - VOMITING [None]
  - WEIGHT DECREASED [None]
